FAERS Safety Report 15461604 (Version 2)
Quarter: 2018Q4

REPORT INFORMATION
  Report Type: Report from Study
  Country: FR (occurrence: FR)
  Receive Date: 20181003
  Receipt Date: 20181126
  Transmission Date: 20190204
  Serious: Yes (Hospitalization)
  Sender: FDA-Public Use
  Company Number: FR-SHIRE-FR201837042

PATIENT

DRUGS (6)
  1. PEGASPARGASE [Suspect]
     Active Substance: PEGASPARGASE
     Indication: ACUTE LYMPHOCYTIC LEUKAEMIA
     Dosage: 336 IU, 1X/DAY:QD
     Route: 042
     Dates: start: 20180821, end: 20180821
  2. VINCRISTINE [Suspect]
     Active Substance: VINCRISTINE
     Indication: ACUTE LYMPHOCYTIC LEUKAEMIA
     Dosage: UNK, 1X/DAY:QD
     Route: 042
     Dates: start: 20180817, end: 20180830
  3. DEXAMETHASONE. [Suspect]
     Active Substance: DEXAMETHASONE
     Indication: ACUTE LYMPHOCYTIC LEUKAEMIA
     Route: 065
  4. TINZAPARIN [Concomitant]
     Active Substance: TINZAPARIN
     Indication: PRODUCT USED FOR UNKNOWN INDICATION
  5. METHOTREXATE. [Suspect]
     Active Substance: METHOTREXATE
     Indication: ACUTE LYMPHOCYTIC LEUKAEMIA
     Dosage: 15 MG, 1X/DAY:QD
     Route: 037
     Dates: start: 20180820
  6. ADRIAMYCIN [Suspect]
     Active Substance: DOXORUBICIN HYDROCHLORIDE
     Indication: ACUTE LYMPHOCYTIC LEUKAEMIA
     Dosage: 0.6 MG, 1X/DAY:QD
     Route: 042
     Dates: start: 20180817

REACTIONS (1)
  - Anal inflammation [Recovered/Resolved]

NARRATIVE: CASE EVENT DATE: 20180906
